FAERS Safety Report 13486572 (Version 1)
Quarter: 2017Q2

REPORT INFORMATION
  Report Type: Spontaneous
  Country: US (occurrence: US)
  Receive Date: 20170426
  Receipt Date: 20170426
  Transmission Date: 20170830
  Serious: Yes (Life-Threatening)
  Sender: FDA-Public Use
  Company Number: US-EDGEWELL PERSONAL CARE, LLC-1065892

PATIENT
  Age: 25 Year
  Sex: Female

DRUGS (1)
  1. WET ONES [Suspect]
     Active Substance: BENZETHONIUM CHLORIDE
     Indication: INFECTION PROPHYLAXIS
     Route: 061
     Dates: start: 20170330, end: 20170330

REACTIONS (2)
  - Asthma [Recovered/Resolved]
  - Anaphylactic shock [None]

NARRATIVE: CASE EVENT DATE: 20170330
